FAERS Safety Report 4450110-8 (Version None)
Quarter: 2004Q3

REPORT INFORMATION
  Report Type: 
  Country: None (occurrence: None)
  Receive Date: 20040804
  Receipt Date: 20040316
  Transmission Date: 20050211
  Serious: Yes (Other)
  Sender: FDA-Public Use
  Company Number: 204696

PATIENT
  Age: 65 Year
  Sex: Female

DRUGS (8)
  1. HERCEPTIN [Suspect]
     Indication: INFLAMMATORY CARCINOMA OF THE BREAST
     Dosage: SEE IMAGE
     Route: 042
     Dates: start: 20031002, end: 20031002
  2. HERCEPTIN [Suspect]
     Indication: INFLAMMATORY CARCINOMA OF THE BREAST
     Dosage: SEE IMAGE
     Route: 042
     Dates: start: 20031001, end: 20040112
  3. HERCEPTIN [Suspect]
     Indication: INFLAMMATORY CARCINOMA OF THE BREAST
     Dosage: SEE IMAGE
     Route: 042
     Dates: start: 20040218
  4. GEMCITABINE (GEMCITABINE HYDROCHLORIDE) [Concomitant]
  5. ASPIRIN [Concomitant]
  6. ATIVAN [Concomitant]
  7. COUMADIN [Concomitant]
  8. ELAVIL [Concomitant]

REACTIONS (1)
  - EJECTION FRACTION DECREASED [None]
